FAERS Safety Report 23177971 (Version 3)
Quarter: 2024Q1

REPORT INFORMATION
  Report Type: Spontaneous
  Country: MX (occurrence: MX)
  Receive Date: 20231113
  Receipt Date: 20240123
  Transmission Date: 20240409
  Serious: Yes (Death, Hospitalization, Other)
  Sender: FDA-Public Use
  Company Number: MX-009507513-2311MEX003673

PATIENT
  Age: 75 Year
  Sex: Male

DRUGS (5)
  1. KEYTRUDA [Suspect]
     Active Substance: PEMBROLIZUMAB
     Indication: Bladder cancer recurrent
     Dosage: 200 MILLIGRAM, Q3W
     Route: 042
     Dates: start: 2023
  2. KEYTRUDA [Suspect]
     Active Substance: PEMBROLIZUMAB
     Dosage: 200 MILLIGRAM, Q3W
     Route: 042
     Dates: start: 2023
  3. KEYTRUDA [Suspect]
     Active Substance: PEMBROLIZUMAB
     Dosage: 200 MILLIGRAM, Q3W
     Route: 042
     Dates: start: 202303
  4. KEYTRUDA [Suspect]
     Active Substance: PEMBROLIZUMAB
     Dosage: 200 MILLIGRAM, Q3W
     Route: 042
     Dates: start: 20230529
  5. KEYTRUDA [Suspect]
     Active Substance: PEMBROLIZUMAB
     Dosage: 200 MILLIGRAM, Q3W
     Route: 042
     Dates: start: 202307

REACTIONS (9)
  - Septic shock [Fatal]
  - Superinfection bacterial [Fatal]
  - Bacterial infection [Recovered/Resolved]
  - Bacterial infection [Unknown]
  - Malignant neoplasm progression [Unknown]
  - Haemorrhage urinary tract [Unknown]
  - Urinary tract infection [Unknown]
  - Suspected counterfeit product [Unknown]
  - Product use in unapproved indication [Unknown]

NARRATIVE: CASE EVENT DATE: 20230101
